FAERS Safety Report 23569639 (Version 1)
Quarter: 2024Q1

REPORT INFORMATION
  Report Type: Spontaneous
  Country: KR (occurrence: KR)
  Receive Date: 20240227
  Receipt Date: 20240227
  Transmission Date: 20240410
  Serious: Yes (Hospitalization, Other)
  Sender: FDA-Public Use
  Company Number: KR-SA-SAC20240226001433

PATIENT
  Age: 69 Year
  Sex: Male

DRUGS (17)
  1. ZALTRAP [Suspect]
     Active Substance: ZIV-AFLIBERCEPT
     Indication: Colorectal cancer
     Dosage: 3 MG/KG, QOW
     Route: 065
     Dates: start: 20210708, end: 20210708
  2. ZALTRAP [Suspect]
     Active Substance: ZIV-AFLIBERCEPT
     Dosage: 2.55 MG/KG, QOW
     Route: 065
     Dates: start: 20210723, end: 20211020
  3. ZALTRAP [Suspect]
     Active Substance: ZIV-AFLIBERCEPT
     Dosage: 2.04 MG/KG, QOW
     Route: 065
     Dates: start: 20211123, end: 20211221
  4. IRINOTECAN HYDROCHLORIDE [Suspect]
     Active Substance: IRINOTECAN HYDROCHLORIDE
     Indication: Colorectal cancer
     Dosage: 97.6 MG/M2, QOW
     Route: 065
     Dates: start: 20211123
  5. IRINOTECAN HYDROCHLORIDE [Suspect]
     Active Substance: IRINOTECAN HYDROCHLORIDE
     Dosage: 114.8 MG/M2, QOW
     Route: 065
     Dates: start: 20210817, end: 20211020
  6. IRINOTECAN HYDROCHLORIDE [Suspect]
     Active Substance: IRINOTECAN HYDROCHLORIDE
     Dosage: 135 MG/M2, QOW
     Route: 065
     Dates: start: 20210708, end: 20210804
  7. LEUCOVORIN CALCIUM [Suspect]
     Active Substance: LEUCOVORIN CALCIUM
     Indication: Colorectal cancer
     Dosage: 150 MG/M2, QOW
     Route: 065
     Dates: start: 20210708
  8. FLUOROURACIL [Suspect]
     Active Substance: FLUOROURACIL
     Indication: Colorectal cancer
     Dosage: 1800 MG/M2, QOW
     Route: 065
     Dates: start: 20210706, end: 20211020
  9. CEFTRIAXONE SODIUM [Concomitant]
     Active Substance: CEFTRIAXONE SODIUM
     Indication: Infection prophylaxis
     Dosage: 2 G
     Route: 065
     Dates: start: 20220502, end: 20220502
  10. CEFTRIAXONE SODIUM [Concomitant]
     Active Substance: CEFTRIAXONE SODIUM
     Dosage: 2 UNK
     Route: 065
     Dates: start: 20220503, end: 20220503
  11. METRONIDAZOLE [Concomitant]
     Active Substance: METRONIDAZOLE
     Indication: Infection prophylaxis
     Dosage: UNK UNK, QD
     Route: 065
     Dates: start: 20220502, end: 20220503
  12. MEPERIDINE HYDROCHLORIDE [Concomitant]
     Active Substance: MEPERIDINE HYDROCHLORIDE
     Indication: Colonoscopy
     Dosage: 1 DF
     Route: 065
     Dates: start: 20220503, end: 20220503
  13. MIDAZOLAM [Concomitant]
     Active Substance: MIDAZOLAM
     Indication: Colonoscopy
     Dosage: 1 DF
     Route: 065
     Dates: start: 20220503, end: 20220503
  14. CEFIXIME [Concomitant]
     Active Substance: CEFIXIME
     Indication: Infection prophylaxis
     Dosage: UNK, Q12H
     Route: 065
     Dates: start: 20220503, end: 20220503
  15. MOXIFLOXACIN [Concomitant]
     Active Substance: MOXIFLOXACIN
     Indication: Constipation prophylaxis
     Dosage: 1 DF, QD
     Route: 065
     Dates: start: 20220504
  16. MAGNESIUM OXIDE [Concomitant]
     Active Substance: MAGNESIUM OXIDE
     Indication: Constipation prophylaxis
     Dosage: 1 DF, Q12H
     Route: 065
     Dates: start: 20220504
  17. CALCIUM POLYCARBOPHIL [Concomitant]
     Active Substance: CALCIUM POLYCARBOPHIL
     Indication: Constipation prophylaxis
     Dosage: 1 DF, Q8H
     Route: 065
     Dates: start: 20220505

REACTIONS (1)
  - Large intestinal obstruction [Recovered/Resolved]

NARRATIVE: CASE EVENT DATE: 20220429
